FAERS Safety Report 11245101 (Version 2)
Quarter: 2015Q3

REPORT INFORMATION
  Report Type: Spontaneous
  Country: US (occurrence: US)
  Receive Date: 20150707
  Receipt Date: 20150825
  Transmission Date: 20151125
  Serious: Yes (Hospitalization, Other)
  Sender: FDA-Public Use
  Company Number: US-PFIZER INC-2015220891

PATIENT
  Age: 73 Year
  Sex: Female
  Weight: 73 kg

DRUGS (1)
  1. ADVIL [Suspect]
     Active Substance: IBUPROFEN
     Indication: HERPES ZOSTER
     Dosage: 200 MG, UNK
     Dates: start: 20150601, end: 2015

REACTIONS (9)
  - Overdose [Recovered/Resolved]
  - Haemoglobin decreased [Unknown]
  - Musculoskeletal stiffness [Unknown]
  - Product use issue [Recovered/Resolved]
  - Neck pain [Unknown]
  - Pain of skin [Unknown]
  - Intestinal haemorrhage [Recovered/Resolved]
  - Gastric perforation [Recovered/Resolved]
  - Arthropod bite [Unknown]

NARRATIVE: CASE EVENT DATE: 20150601
